FAERS Safety Report 5920956-5 (Version None)
Quarter: 2008Q4

REPORT INFORMATION
  Report Type: 
  Country: None (occurrence: None)
  Receive Date: 20081015
  Receipt Date: 20081015
  Transmission Date: 20090506
  Serious: Yes (Other)
  Sender: FDA-Public Use
  Company Number: None

PATIENT
  Age: 31 Year
  Sex: Female
  Weight: 49.8957 kg

DRUGS (1)
  1. DESMOPRESSIN 0.1MG TEVA USA [Suspect]
     Indication: DIABETES INSIPIDUS
     Dosage: 0.2 EVERY 8 HOURS PO
     Route: 048
     Dates: start: 20080201, end: 20080206

REACTIONS (4)
  - DEHYDRATION [None]
  - HYPERNATRAEMIA [None]
  - PRODUCT QUALITY ISSUE [None]
  - THERAPEUTIC RESPONSE DECREASED [None]
